FAERS Safety Report 12967419 (Version 1)
Quarter: 2016Q4

REPORT INFORMATION
  Report Type: Spontaneous
  Country: US (occurrence: US)
  Receive Date: 20161123
  Receipt Date: 20161123
  Transmission Date: 20170207
  Serious: Yes (Hospitalization, Other)
  Sender: FDA-Public Use
  Company Number: US-PAR PHARMACEUTICAL COMPANIES-2016SCPR016117

PATIENT
  Age: 96 Year
  Sex: Female

DRUGS (2)
  1. IMIPRAMINE HCL [Suspect]
     Active Substance: IMIPRAMINE HYDROCHLORIDE
     Indication: BLADDER DISORDER
     Dosage: UNK UNK, UNKNOWN
     Route: 048
     Dates: start: 2015, end: 2016
  2. SEROQUEL [Suspect]
     Active Substance: QUETIAPINE FUMARATE
     Indication: HALLUCINATION
     Dosage: 1 DF, / DAY
     Route: 048

REACTIONS (4)
  - Fall [Unknown]
  - Hallucination [Recovered/Resolved]
  - Wound [Unknown]
  - Off label use [Unknown]

NARRATIVE: CASE EVENT DATE: 2016
